FAERS Safety Report 10473020 (Version 1)
Quarter: 2014Q3

REPORT INFORMATION
  Report Type: Spontaneous
  Country: JP (occurrence: None)
  Receive Date: 20140922
  Receipt Date: 20140922
  Transmission Date: 20150326
  Serious: Yes (Hospitalization)
  Sender: FDA-Public Use
  Company Number: 2014JP003687

PATIENT
  Age: 74 Year
  Sex: Female
  Weight: 64 kg

DRUGS (6)
  1. PONATINIB (AP24534) TABLET [Suspect]
     Active Substance: PONATINIB
     Indication: CHRONIC MYELOID LEUKAEMIA
     Route: 048
     Dates: start: 20130712, end: 20131020
  2. FLUITRAN (TRICHLOMETHIAZIDE) [Concomitant]
  3. OLMETEC (OLMESARTAN MEDOXOML) [Concomitant]
  4. IRSOGLADINE MALEATE [Concomitant]
     Active Substance: IRSOGLADINE MALEATE
  5. NEGMIN (POVIDONE-IODINE) [Concomitant]
  6. AMLODIPINE [Concomitant]
     Active Substance: AMLODIPINE BESYLATE

REACTIONS (5)
  - Platelet count decreased [None]
  - White blood cell count decreased [None]
  - Cough [None]
  - Infection [None]
  - Malaise [None]

NARRATIVE: CASE EVENT DATE: 20140907
